FAERS Safety Report 26158345 (Version 1)
Quarter: 2025Q4

REPORT INFORMATION
  Report Type: Report from Study
  Country: EU (occurrence: EU)
  Receive Date: 20251215
  Receipt Date: 20251215
  Transmission Date: 20260118
  Serious: Yes (Hospitalization, Other)
  Sender: NOVARTIS
  Company Number: EU-002147023-NVSC2025DE122715

PATIENT
  Sex: Female
  Weight: 65 kg

DRUGS (2)
  1. KISQALI [Suspect]
     Active Substance: RIBOCICLIB SUCCINATE
     Indication: Hormone receptor positive HER2 negative breast cancer
     Dosage: 400 MG 2X 200 MG (400 MG TOTAL DAILY DOSE), QD (ONCE IN THE MORNING (2-0-0), 21 DAYS DAILY INTAKE, 7
     Route: 048
     Dates: start: 20250715, end: 20250729
  2. LETROZOLE [Suspect]
     Active Substance: LETROZOLE
     Indication: Hormone receptor positive HER2 negative breast cancer
     Dosage: 2.5 MG, QD
     Route: 065
     Dates: start: 20250715, end: 20250729

REACTIONS (4)
  - Cerebral artery embolism [Recovered/Resolved]
  - Cerebral ischaemia [Recovered/Resolved]
  - Thrombocytopenia [Unknown]
  - Off label use [Unknown]

NARRATIVE: CASE EVENT DATE: 20250729
